FAERS Safety Report 25869527 (Version 1)
Quarter: 2025Q4

REPORT INFORMATION
  Report Type: Spontaneous
  Country: EU (occurrence: EU)
  Receive Date: 20251001
  Receipt Date: 20251001
  Transmission Date: 20260118
  Serious: Yes (Hospitalization, Other)
  Sender: MERCK SHARP & DOHME LLC
  Company Number: EU-009507513-2332294

PATIENT
  Sex: Female

DRUGS (1)
  1. PEMBROLIZUMAB [Suspect]
     Active Substance: PEMBROLIZUMAB
     Indication: Lung adenocarcinoma stage IV
     Dates: start: 20190509, end: 20231116

REACTIONS (10)
  - Papillary urothelial neoplasm of low malignant potential [Recovered/Resolved]
  - Aortic valve incompetence [Unknown]
  - Aortic valve calcification [Unknown]
  - Therapy partial responder [Unknown]
  - Organising pneumonia [Recovering/Resolving]
  - Aortic stenosis [Unknown]
  - COVID-19 [Unknown]
  - Arthritis reactive [Recovering/Resolving]
  - Aortic aneurysm [Unknown]
  - Left atrial enlargement [Unknown]

NARRATIVE: CASE EVENT DATE: 20190701
